FAERS Safety Report 5293769-8 (Version None)
Quarter: 2007Q2

REPORT INFORMATION
  Report Type: 
  Country: None (occurrence: None)
  Receive Date: 20070405
  Receipt Date: 20070322
  Transmission Date: 20071010
  Serious: Yes (Hospitalization)
  Sender: FDA-Public Use
  Company Number: 2007P1000149

PATIENT
  Age: 45 Year
  Sex: Female

DRUGS (5)
  1. BUSULFAN (BUSULFAN) [Suspect]
     Indication: STEM CELL TRANSPLANT
     Dosage: 7.13 ML; QID; IV
     Route: 042
     Dates: start: 20061020, end: 20061023
  2. CYCLOSPORINE [Suspect]
  3. PHENYTOIN [Concomitant]
  4. CYCLOPHOSPHAMIDE [Concomitant]
  5. METHOTREXATE [Concomitant]

REACTIONS (1)
  - RENAL IMPAIRMENT [None]
